FAERS Safety Report 18623499 (Version 1)
Quarter: 2020Q4

REPORT INFORMATION
  Report Type: Spontaneous
  Country: US (occurrence: US)
  Receive Date: 20201216
  Receipt Date: 20201216
  Transmission Date: 20210114
  Serious: No
  Sender: FDA-Public Use
  Company Number: None

PATIENT
  Sex: Female

DRUGS (1)
  1. GRANIX [Suspect]
     Active Substance: TBO-FILGRASTIM
     Indication: AGRANULOCYTOSIS
     Dosage: ?          OTHER DOSE:300MCG;?
     Route: 058
     Dates: start: 20200623

REACTIONS (2)
  - Heart rate increased [None]
  - Pyrexia [None]
